FAERS Safety Report 6816622-4 (Version None)
Quarter: 2010Q3

REPORT INFORMATION
  Report Type: 
  Country: None (occurrence: None)
  Receive Date: 20100706
  Receipt Date: 20100625
  Transmission Date: 20110219
  Serious: Yes (Hospitalization, Other)
  Sender: FDA-Public Use
  Company Number: CH-WYE-G06319210

PATIENT
  Age: 21 Year
  Sex: Female
  Weight: 57 kg

DRUGS (18)
  1. EFFEXOR [Suspect]
     Indication: DEPRESSION
     Route: 048
     Dates: start: 20091120, end: 20091122
  2. EFFEXOR [Suspect]
     Route: 048
     Dates: start: 20091123, end: 20091203
  3. EFFEXOR [Suspect]
     Route: 048
     Dates: start: 20091204, end: 20091208
  4. ZOLOFT [Suspect]
     Route: 048
     Dates: start: 20091219, end: 20091220
  5. OLFEN [Concomitant]
     Dates: start: 20090101
  6. SEROQUEL [Suspect]
     Dosage: DOSE NOT REPORTED
     Dates: start: 20091208, end: 20091216
  7. LORAZEPAM [Concomitant]
     Route: 048
     Dates: start: 20091219, end: 20091220
  8. LORAZEPAM [Concomitant]
     Route: 048
     Dates: start: 20091221, end: 20091227
  9. LORAZEPAM [Concomitant]
     Route: 048
     Dates: start: 20091228, end: 20100103
  10. LORAZEPAM [Concomitant]
     Route: 048
     Dates: start: 20100104, end: 20100105
  11. LORAZEPAM [Concomitant]
     Route: 048
     Dates: start: 20100106, end: 20100107
  12. LORAZEPAM [Concomitant]
     Route: 048
     Dates: start: 20100108, end: 20100109
  13. LORAZEPAM [Concomitant]
     Route: 048
     Dates: start: 20100110, end: 20100111
  14. REMERON [Suspect]
     Route: 048
     Dates: start: 20091118, end: 20091122
  15. REMERON [Suspect]
     Route: 048
     Dates: start: 20091123, end: 20091123
  16. REMERON [Suspect]
     Route: 048
     Dates: start: 20091124, end: 20091207
  17. REMERON [Suspect]
     Route: 048
     Dates: start: 20091219, end: 20091220
  18. CYMBALTA [Suspect]
     Dosage: DOSE NOT REPORTED
     Dates: start: 20091209, end: 20091214

REACTIONS (19)
  - CACHEXIA [None]
  - CONDITION AGGRAVATED [None]
  - DIARRHOEA [None]
  - DIZZINESS POSTURAL [None]
  - DRUG INTOLERANCE [None]
  - DRUG WITHDRAWAL SYNDROME [None]
  - DYSPNOEA AT REST [None]
  - ELECTROCARDIOGRAM REPOLARISATION ABNORMALITY [None]
  - GENERAL PHYSICAL HEALTH DETERIORATION [None]
  - HYPERHIDROSIS [None]
  - HYPERSENSITIVITY [None]
  - HYPOPHAGIA [None]
  - MALAISE [None]
  - NAUSEA [None]
  - PALPITATIONS [None]
  - RASH PRURITIC [None]
  - RESTLESSNESS [None]
  - SINUS TACHYCARDIA [None]
  - WEIGHT DECREASED [None]
